FAERS Safety Report 7355180-5 (Version None)
Quarter: 2011Q1

REPORT INFORMATION
  Report Type: 
  Country: None (occurrence: None)
  Receive Date: 20110316
  Receipt Date: 20110309
  Transmission Date: 20110831
  Serious: Yes (Hospitalization, Other)
  Sender: FDA-Public Use
  Company Number: US-JNJFOC-20100808227

PATIENT
  Sex: Female

DRUGS (3)
  1. LEVAQUIN [Suspect]
     Indication: SINUSITIS
     Route: 048
  2. LEVAQUIN [Suspect]
     Indication: VASOMOTOR RHINITIS
     Route: 048
  3. ANTIBIOTIC [Suspect]
     Indication: PRODUCT USED FOR UNKNOWN INDICATION
     Route: 065

REACTIONS (5)
  - ANXIETY [None]
  - MUSCLE SPASMS [None]
  - TENDONITIS [None]
  - NECK PAIN [None]
  - ROTATOR CUFF SYNDROME [None]
